FAERS Safety Report 8923384 (Version 2)
Quarter: 2014Q1

REPORT INFORMATION
  Report Type: Report from Study
  Country: NL (occurrence: NL)
  Receive Date: 20121124
  Receipt Date: 20140217
  Transmission Date: 20141002
  Serious: Yes (Hospitalization)
  Sender: FDA-Public Use
  Company Number: PHHO2012NL016463

PATIENT
  Sex: 0

DRUGS (5)
  1. MYFORTIC [Suspect]
     Indication: RENAL TRANSPLANT
     Dosage: 540 MG, BID
     Route: 048
     Dates: start: 20120822, end: 20121118
  2. PROGRAF [Suspect]
     Indication: RENAL TRANSPLANT
     Dosage: 1.5 MG, BID
     Route: 048
     Dates: start: 20120822, end: 20121118
  3. PROGRAF [Suspect]
     Dosage: 2.5 MG, BID
     Route: 048
     Dates: start: 20121119
  4. STEROIDS NOS [Concomitant]
     Dosage: 7.5 MG, QD
     Route: 048
     Dates: start: 20120822, end: 20121117
  5. STEROIDS NOS [Concomitant]
     Dosage: 10 MG, BID
     Route: 048
     Dates: start: 20121118

REACTIONS (3)
  - Hypophagia [Unknown]
  - Mouth ulceration [Unknown]
  - Candida infection [Unknown]
